FAERS Safety Report 4862807-6 (Version None)
Quarter: 2005Q4

REPORT INFORMATION
  Report Type: 
  Country: None (occurrence: None)
  Receive Date: 20051221
  Receipt Date: 20051214
  Transmission Date: 20060501
  Serious: Yes (Hospitalization)
  Sender: FDA-Public Use
  Company Number: 2005AP06475

PATIENT
  Age: 28 Year
  Sex: Female

DRUGS (2)
  1. NOLVADEX [Suspect]
     Indication: BREAST CANCER
     Route: 048
  2. FURTULON [Concomitant]
     Indication: BREAST CANCER
     Route: 048

REACTIONS (2)
  - DIARRHOEA [None]
  - SMALL INTESTINE ULCER [None]
